FAERS Safety Report 7954009-1 (Version None)
Quarter: 2011Q4

REPORT INFORMATION
  Report Type: 
  Country: None (occurrence: None)
  Receive Date: 20111202
  Receipt Date: 20111202
  Transmission Date: 20120403
  Serious: Yes (Life-Threatening)
  Sender: FDA-Public Use
  Company Number: None

PATIENT
  Sex: Male
  Weight: 68.038 kg

DRUGS (1)
  1. RAPAFLO [Suspect]
     Indication: PROSTATIC DISORDER
     Dosage: 8 MILLIGRAMS
     Route: 048
     Dates: start: 20111115, end: 20111122

REACTIONS (4)
  - EJACULATION FAILURE [None]
  - NASAL CONGESTION [None]
  - ATRIAL FLUTTER [None]
  - DRY MOUTH [None]
